FAERS Safety Report 24608745 (Version 10)
Quarter: 2025Q2

REPORT INFORMATION
  Report Type: Spontaneous
  Country: US (occurrence: US)
  Receive Date: 20241112
  Receipt Date: 20250604
  Transmission Date: 20250716
  Serious: No
  Sender: KARYOPHARM THERAPEUTICS
  Company Number: US-KARYOPHARM-2024KPT001743

PATIENT

DRUGS (5)
  1. XPOVIO [Suspect]
     Active Substance: SELINEXOR
     Indication: Central nervous system leukaemia
     Route: 048
  2. XPOVIO [Suspect]
     Active Substance: SELINEXOR
     Route: 048
     Dates: start: 20241107
  3. EMEND [Concomitant]
     Active Substance: APREPITANT
  4. CYPROHEPTADINE [Concomitant]
     Active Substance: CYPROHEPTADINE
  5. DRONABINOL [Concomitant]
     Active Substance: DRONABINOL

REACTIONS (12)
  - Somnolence [Recovered/Resolved]
  - Asthenia [Recovered/Resolved]
  - Constipation [Unknown]
  - Decreased appetite [Not Recovered/Not Resolved]
  - Weight decreased [Not Recovered/Not Resolved]
  - Fatigue [Unknown]
  - Nausea [Unknown]
  - Vomiting [Not Recovered/Not Resolved]
  - Off label use [Unknown]
  - Off label use [Unknown]
  - Wrong technique in product usage process [Unknown]
  - Drug ineffective [Unknown]

NARRATIVE: CASE EVENT DATE: 20240101
